FAERS Safety Report 4917149-7 (Version None)
Quarter: 2006Q1

REPORT INFORMATION
  Report Type: 
  Country: None (occurrence: None)
  Receive Date: 20060214
  Receipt Date: 20060127
  Transmission Date: 20060701
  Serious: Yes (Hospitalization, Other)
  Sender: FDA-Public Use
  Company Number: CH200602000640

PATIENT
  Age: 60 Year
  Sex: Female

DRUGS (6)
  1. ZYPREXA [Suspect]
     Indication: SCHIZOAFFECTIVE DISORDER
     Dosage: 5 MG, DAILY (1/D)
  2. QUETIAPINE FUMARATE [Concomitant]
  3. HALOPERIDOL [Concomitant]
  4. LITHIUM ACETATE (LITHIUM ACETATE) [Concomitant]
  5. CLOZAPINE [Concomitant]
  6. RISPERIDONE [Concomitant]

REACTIONS (32)
  - AKATHISIA [None]
  - APHASIA [None]
  - APRAXIA [None]
  - ASTHENIA [None]
  - BRADYKINESIA [None]
  - BRAIN DAMAGE [None]
  - CEREBELLAR ATROPHY [None]
  - CHILLS [None]
  - DELIRIUM [None]
  - DEMENTIA [None]
  - DISORIENTATION [None]
  - DISTURBANCE IN ATTENTION [None]
  - DRUG TOXICITY [None]
  - DYSSTASIA [None]
  - ECHOLALIA [None]
  - ELECTROENCEPHALOGRAM ABNORMAL [None]
  - ENCEPHALOPATHY [None]
  - GAIT DISTURBANCE [None]
  - HYPOMANIA [None]
  - MANIA [None]
  - MEMORY IMPAIRMENT [None]
  - NEUROLEPTIC MALIGNANT SYNDROME [None]
  - NEUROTOXICITY [None]
  - ORAL DYSAESTHESIA [None]
  - PARKINSONISM [None]
  - POSTURE ABNORMAL [None]
  - RESTLESSNESS [None]
  - SALIVARY HYPERSECRETION [None]
  - SEBORRHOEA [None]
  - SPEECH DISORDER [None]
  - STUPOR [None]
  - THINKING ABNORMAL [None]
